FAERS Safety Report 9002917 (Version 1)
Quarter: 2013Q1

REPORT INFORMATION
  Report Type: Spontaneous
  Country: US (occurrence: US)
  Receive Date: 20130108
  Receipt Date: 20130108
  Transmission Date: 20140127
  Serious: Yes (Death)
  Sender: FDA-Public Use
  Company Number: US-PFIZER INC-2013007765

PATIENT
  Age: 47 Year
  Sex: Female

DRUGS (8)
  1. DILTIAZEM HCL [Suspect]
     Route: 048
  2. GABAPENTIN [Suspect]
     Route: 048
  3. CITALOPRAM [Suspect]
     Route: 048
  4. LISINOPRIL [Suspect]
     Route: 048
  5. TRAZODONE [Suspect]
     Route: 048
  6. IRON [Suspect]
     Route: 048
  7. ACETAMINOPHEN\PROPOXYPHENE [Suspect]
     Route: 048
  8. MODAFINIL [Suspect]
     Route: 048

REACTIONS (1)
  - Adverse reaction [Fatal]
